FAERS Safety Report 5031637-7 (Version None)
Quarter: 2006Q2

REPORT INFORMATION
  Report Type: 
  Country: None (occurrence: None)
  Receive Date: 20060621
  Receipt Date: 20060503
  Transmission Date: 20061013
  Serious: Yes (Other)
  Sender: FDA-Public Use
  Company Number: US-ROCHE-446704

PATIENT
  Age: 48 Year
  Sex: Female

DRUGS (3)
  1. ZENAPAX [Suspect]
     Indication: MULTIPLE SCLEROSIS
     Route: 065
  2. COPAXONE [Suspect]
     Indication: DRUG USE FOR UNKNOWN INDICATION
     Route: 065
  3. BACLOFEN [Suspect]
     Indication: DRUG USE FOR UNKNOWN INDICATION
     Route: 065

REACTIONS (6)
  - FATIGUE [None]
  - MULTIPLE SCLEROSIS [None]
  - PALLOR [None]
  - PERICARDIAL EFFUSION [None]
  - PLEURAL EFFUSION [None]
  - PYREXIA [None]
